FAERS Safety Report 8565113-1 (Version None)
Quarter: 2012Q3

REPORT INFORMATION
  Report Type: 
  Country: None (occurrence: None)
  Receive Date: 20120723
  Receipt Date: 20120717
  Transmission Date: 20120928
  Serious: Yes (Other)
  Sender: FDA-Public Use
  Company Number: DSA_57503_2012

PATIENT
  Sex: Female

DRUGS (7)
  1. SEROQUEL [Suspect]
     Indication: PRODUCT USED FOR UNKNOWN INDICATION
     Dosage: DF
  2. XENAZINE [Suspect]
     Indication: HUNTINGTON'S DISEASE
     Dosage: 12.5 MG QD ORAL; 12.5 MG,BID, 12.5 MG IN THE MORNING AND 25 MG IN THE EVENING, ORAL; 12MG BID ORAL
     Route: 048
     Dates: start: 20120501, end: 20120601
  3. XENAZINE [Suspect]
     Indication: HUNTINGTON'S DISEASE
     Dosage: 12.5 MG QD ORAL; 12.5 MG,BID, 12.5 MG IN THE MORNING AND 25 MG IN THE EVENING, ORAL; 12MG BID ORAL
     Route: 048
     Dates: start: 20120601, end: 20120701
  4. XENAZINE [Suspect]
     Indication: HUNTINGTON'S DISEASE
     Dosage: 12.5 MG QD ORAL; 12.5 MG,BID, 12.5 MG IN THE MORNING AND 25 MG IN THE EVENING, ORAL; 12MG BID ORAL
     Route: 048
     Dates: start: 20120519, end: 20120501
  5. XENAZINE [Suspect]
     Indication: HUNTINGTON'S DISEASE
     Dosage: 12.5 MG QD ORAL; 12.5 MG,BID, 12.5 MG IN THE MORNING AND 25 MG IN THE EVENING, ORAL; 12MG BID ORAL
     Route: 048
     Dates: start: 20120601, end: 20120601
  6. CELEXA [Suspect]
     Indication: PRODUCT USED FOR UNKNOWN INDICATION
     Dosage: DF
  7. HALDOL [Suspect]
     Indication: CHOREA
     Dosage: DF

REACTIONS (5)
  - ABDOMINAL PAIN LOWER [None]
  - DEPRESSION [None]
  - CONFUSIONAL STATE [None]
  - DRUG INTERACTION [None]
  - ABNORMAL BEHAVIOUR [None]
